FAERS Safety Report 7241699-4 (Version None)
Quarter: 2011Q1

REPORT INFORMATION
  Report Type: 
  Country: None (occurrence: None)
  Receive Date: 20110124
  Receipt Date: 20110113
  Transmission Date: 20110831
  Serious: Yes (Other)
  Sender: FDA-Public Use
  Company Number: PHHY2010BR23900

PATIENT
  Sex: Female

DRUGS (5)
  1. CRESTOR [Concomitant]
     Indication: BLOOD TRIGLYCERIDES ABNORMAL
     Dosage: 1 DF, DAILY
     Route: 048
  2. DIOVAN AMLO FIX [Suspect]
     Indication: HYPERTENSION
     Dosage: 1 DF, DAILY
     Route: 048
  3. CRESTOR [Concomitant]
     Indication: BLOOD CHOLESTEROL ABNORMAL
  4. DIOVAN AMLO FIX [Suspect]
     Dosage: UNK
     Route: 048
     Dates: start: 20100322
  5. GLAUTIMOL (TIMOLOL MALEATE) [Concomitant]
     Indication: GLAUCOMA
     Dosage: 1 DRP, ONCE/SINGLE IN EACH EYE.

REACTIONS (5)
  - INFLUENZA [None]
  - HEPATIC STEATOSIS [None]
  - BLOOD PRESSURE INCREASED [None]
  - MITRAL VALVE DISEASE [None]
  - COUGH [None]
